FAERS Safety Report 5221692-3 (Version None)
Quarter: 2007Q1

REPORT INFORMATION
  Report Type: 
  Country: None (occurrence: None)
  Receive Date: 20070129
  Receipt Date: 20070117
  Transmission Date: 20070707
  Serious: Yes (Other)
  Sender: FDA-Public Use
  Company Number: PHBS2007US01550

PATIENT
  Age: 26 Year
  Sex: Male

DRUGS (3)
  1. VALPROATE SODIUM [Suspect]
     Dosage: 1400 MG/D
     Route: 065
  2. CLOZAPINE [Suspect]
     Indication: BIPOLAR DISORDER
     Dosage: 25 MG/D
     Route: 065
  3. CLOZAPINE [Suspect]
     Dosage: 50 MG/D
     Route: 065

REACTIONS (4)
  - BURNING SENSATION [None]
  - INSOMNIA [None]
  - PARAESTHESIA [None]
  - RESTLESS LEGS SYNDROME [None]
